FAERS Safety Report 17710906 (Version 1)
Quarter: 2020Q2

REPORT INFORMATION
  Report Type: Spontaneous
  Country: US (occurrence: US)
  Receive Date: 20200427
  Receipt Date: 20200427
  Transmission Date: 20200714
  Serious: Yes (Hospitalization, Other)
  Sender: FDA-Public Use
  Company Number: US-009507513-2004USA007354

PATIENT
  Age: 75 Year
  Sex: Female

DRUGS (2)
  1. TEMODAR [Suspect]
     Active Substance: TEMOZOLOMIDE
     Indication: GLIOMA
     Dosage: UNK
     Route: 048
  2. DECADRON [Suspect]
     Active Substance: DEXAMETHASONE
     Indication: GLIOMA
     Dosage: 2 MG IN THE MORNING AND 1MG IN THE EVENING
     Route: 048

REACTIONS (3)
  - Off label use [Unknown]
  - Nocardiosis [Recovered/Resolved with Sequelae]
  - Bacterial abscess central nervous system [Recovered/Resolved with Sequelae]
